FAERS Safety Report 16067326 (Version 4)
Quarter: 2019Q3

REPORT INFORMATION
  Report Type: Spontaneous
  Country: JP (occurrence: JP)
  Receive Date: 20190313
  Receipt Date: 20190913
  Transmission Date: 20191004
  Serious: Yes (Hospitalization)
  Sender: FDA-Public Use
  Company Number: JP-EISAI MEDICAL RESEARCH-EC-2019-053045

PATIENT
  Age: 85 Year
  Sex: Male
  Weight: 60 kg

DRUGS (2)
  1. LENVIMA [Suspect]
     Active Substance: LENVATINIB
     Route: 048
     Dates: start: 20181120, end: 20190202
  2. LENVIMA [Suspect]
     Active Substance: LENVATINIB
     Indication: HEPATOCELLULAR CARCINOMA
     Route: 048
     Dates: start: 20181114, end: 20181119

REACTIONS (4)
  - Abdominal wall abscess [Unknown]
  - Liver disorder [Unknown]
  - Subdiaphragmatic abscess [Recovered/Resolved]
  - Cholangitis [Unknown]

NARRATIVE: CASE EVENT DATE: 20181120
